FAERS Safety Report 13259902 (Version 2)
Quarter: 2017Q1

REPORT INFORMATION
  Report Type: Spontaneous
  Country: NO (occurrence: NO)
  Receive Date: 20170222
  Receipt Date: 20170223
  Transmission Date: 20170428
  Serious: Yes (Life-Threatening, Other)
  Sender: FDA-Public Use
  Company Number: NO-PFIZER INC-2017073934

PATIENT
  Age: 54 Year
  Sex: Male
  Weight: 125 kg

DRUGS (17)
  1. PINEX FORTE [Concomitant]
     Active Substance: ACETAMINOPHEN\CODEINE PHOSPHATE
     Indication: GOUT
     Dosage: UNK
     Dates: start: 20020101
  2. RITALIN [Interacting]
     Active Substance: METHYLPHENIDATE HYDROCHLORIDE
     Indication: ATTENTION DEFICIT/HYPERACTIVITY DISORDER
     Dosage: 2 X 40 MG IN THE MORNING AND 1 X 40 MG IN THE AFTERNOON
     Dates: start: 20140101
  3. LEVAXIN [Concomitant]
     Active Substance: LEVOTHYROXINE SODIUM
     Indication: METABOLIC DISORDER
     Dosage: UNK
     Dates: start: 19980101
  4. CARVEDILOL HEXAL [Concomitant]
     Active Substance: CARVEDILOL
     Indication: HYPERTENSION
     Dosage: UNK
     Dates: start: 20120101
  5. VIVAL [Concomitant]
     Active Substance: DIAZEPAM
     Indication: ANXIETY
     Dosage: USED RARELY
     Dates: start: 19900101
  6. AMARYL [Concomitant]
     Active Substance: GLIMEPIRIDE
     Indication: DIABETES MELLITUS
     Dosage: UNK
     Dates: start: 20150101
  7. TOVIAZ [Interacting]
     Active Substance: FESOTERODINE FUMARATE
     Dosage: 4 MG, UNK
     Dates: end: 20170205
  8. NEXIUM [Concomitant]
     Active Substance: ESOMEPRAZOLE MAGNESIUM
     Indication: MUSCULAR WEAKNESS
     Dosage: UNK
     Dates: start: 20140101
  9. ZOLOFT [Concomitant]
     Active Substance: SERTRALINE HYDROCHLORIDE
     Indication: ANXIETY
     Dosage: UNK
     Dates: start: 20100101
  10. KOLKISIN NAF [Concomitant]
     Indication: GOUT
     Dosage: UNK
     Dates: start: 20160101
  11. JANUVIA [Concomitant]
     Active Substance: SITAGLIPTIN PHOSPHATE
     Indication: DIABETES MELLITUS
     Dosage: UNK
     Dates: start: 20140601
  12. ZYLORIC [Concomitant]
     Active Substance: ALLOPURINOL
     Indication: GOUT
     Dosage: UNK
     Dates: start: 20160101
  13. JARDIANCE [Concomitant]
     Active Substance: EMPAGLIFLOZIN
     Indication: DIABETES MELLITUS
     Dosage: UNK
     Dates: start: 20160101
  14. TOVIAZ [Suspect]
     Active Substance: FESOTERODINE FUMARATE
     Indication: HYPERTONIC BLADDER
     Dosage: 8 MG, 1X/DAY
     Dates: start: 20161202
  15. COAPROVEL [Concomitant]
     Active Substance: HYDROCHLOROTHIAZIDE\IRBESARTAN
     Indication: HYPERTENSION
     Dosage: UNK
     Dates: start: 20100101
  16. ADALAT [Concomitant]
     Active Substance: NIFEDIPINE
     Indication: HYPERTENSION
     Dosage: UNK
     Dates: start: 20130101
  17. LIPITOR [Concomitant]
     Active Substance: ATORVASTATIN CALCIUM
     Indication: BLOOD CHOLESTEROL INCREASED
     Dosage: UNK
     Dates: start: 20020101

REACTIONS (11)
  - Dry skin [Recovered/Resolved]
  - Suicidal ideation [Recovered/Resolved]
  - Skin fissures [Recovered/Resolved]
  - Dysphagia [Recovered/Resolved]
  - Inhibitory drug interaction [Recovered/Resolved]
  - Depression [Recovered/Resolved]
  - Dry throat [Recovered/Resolved]
  - Ataxia [Recovered/Resolved]
  - Chills [Recovered/Resolved]
  - Suffocation feeling [Recovered/Resolved]
  - Fatigue [Recovered/Resolved]

NARRATIVE: CASE EVENT DATE: 20161206
